FAERS Safety Report 5980295-3 (Version None)
Quarter: 2008Q4

REPORT INFORMATION
  Report Type: 
  Country: None (occurrence: None)
  Receive Date: 20081205
  Receipt Date: 20081204
  Transmission Date: 20090506
  Serious: Yes (Death, Hospitalization)
  Sender: FDA-Public Use
  Company Number: PHBS2008US06581

PATIENT
  Age: 51 Year
  Sex: Female

DRUGS (5)
  1. CYCLOSPORINE [Suspect]
     Indication: PYODERMA GANGRENOSUM
  2. STEROIDS NOS [Suspect]
     Indication: PYODERMA GANGRENOSUM
  3. THALIDOMIDE [Suspect]
     Indication: PYODERMA GANGRENOSUM
  4. IMURAN [Suspect]
     Indication: CROHN'S DISEASE
  5. OXYGEN THERAPY [Concomitant]
     Indication: PYODERMA GANGRENOSUM

REACTIONS (6)
  - DYSPLASIA [None]
  - FUNGAEMIA [None]
  - MALIGNANT TUMOUR EXCISION [None]
  - SEPSIS [None]
  - SKIN INFECTION [None]
  - SQUAMOUS CELL CARCINOMA [None]
